FAERS Safety Report 7294095-8 (Version None)
Quarter: 2011Q1

REPORT INFORMATION
  Report Type: 
  Country: None (occurrence: None)
  Receive Date: 20110215
  Receipt Date: 20110114
  Transmission Date: 20110831
  Serious: No
  Sender: FDA-Public Use
  Company Number: US-BAYER-2011-005480

PATIENT
  Sex: Female
  Weight: 63 kg

DRUGS (4)
  1. ALEVE (CAPLET) [Suspect]
     Indication: ARTHRALGIA
     Dosage: UNK
     Route: 048
     Dates: start: 20110114
  2. LISINOPRIL [Concomitant]
  3. INSULIN [Concomitant]
  4. INDAPAMIDE [Concomitant]

REACTIONS (2)
  - DIZZINESS [None]
  - ASTHENIA [None]
